FAERS Safety Report 8785422 (Version 2)
Quarter: 2013Q1

REPORT INFORMATION
  Report Type: Spontaneous
  Country: US (occurrence: US)
  Receive Date: 20120914
  Receipt Date: 20130111
  Transmission Date: 20140127
  Serious: No
  Sender: FDA-Public Use
  Company Number: US-009507513-1209USA004444

PATIENT
  Sex: Female

DRUGS (1)
  1. ASMANEX TWISTHALER [Suspect]

REACTIONS (3)
  - Accidental exposure to product [Unknown]
  - Product quality issue [Unknown]
  - No adverse event [Unknown]
